FAERS Safety Report 8860010 (Version 2)
Quarter: 2012Q4

REPORT INFORMATION
  Report Type: 
  Country: US (occurrence: US)
  Receive Date: 20121025
  Receipt Date: 20121031
  Transmission Date: 20130627
  Serious: Yes (Hospitalization)
  Sender: FDA-Public Use
  Company Number: PHEH2011US07897

PATIENT
  Age: 54 Year
  Sex: Female
  Weight: 84 kg

DRUGS (12)
  1. GLEEVEC [Suspect]
     Indication: CHRONIC MYELOID LEUKAEMIA
     Dosage: 400 mg daily
     Route: 048
     Dates: start: 20110725, end: 20120829
  2. GLEEVEC [Suspect]
     Dosage: 400 mg, daily
     Route: 048
  3. MAGNESIUM [Concomitant]
     Dosage: UNK
  4. CITALOPRAM [Concomitant]
     Dosage: UNK
  5. PROBIOTICS [Concomitant]
     Dosage: UNK
  6. CLARINEX [Concomitant]
     Dosage: UNK
  7. VITAMIN B12 [Concomitant]
     Dosage: UNK
  8. FISH OIL [Concomitant]
     Dosage: UNK
  9. VITAMIN C [Concomitant]
     Dosage: UNK
  10. XALATAN [Concomitant]
     Dosage: UNK
  11. CALCIUM CITRATE [Concomitant]
     Dosage: UNK
  12. VITAMIN A [Concomitant]

REACTIONS (9)
  - Intervertebral disc protrusion [Unknown]
  - Intervertebral disc space narrowing [Unknown]
  - Back pain [Recovering/Resolving]
  - Muscular weakness [Recovering/Resolving]
  - Abasia [Recovering/Resolving]
  - Muscle spasms [Recovering/Resolving]
  - Nausea [Not Recovered/Not Resolved]
  - Vomiting [Not Recovered/Not Resolved]
  - Periorbital oedema [Recovering/Resolving]
